APPROVED DRUG PRODUCT: ANTIZOL
Active Ingredient: FOMEPIZOLE
Strength: 1.5GM/1.5ML (1GM/ML) **Federal Register determination that product was not discontinued or withdrawn for safety or effectiveness reasons**
Dosage Form/Route: INJECTABLE;INJECTION
Application: N020696 | Product #001
Applicant: PAR PHARMACEUTICAL INC
Approved: Dec 4, 1997 | RLD: Yes | RS: No | Type: DISCN

PATENTS:
Patent 7553863 | Expires: Jun 30, 2027